FAERS Safety Report 4579591-6 (Version None)
Quarter: 2005Q1

REPORT INFORMATION
  Report Type: 
  Country: None (occurrence: None)
  Receive Date: 20050210
  Receipt Date: 20050126
  Transmission Date: 20050727
  Serious: Yes (Death, Hospitalization)
  Sender: FDA-Public Use
  Company Number: 2004AL000819

PATIENT
  Age: 25 Year
  Sex: Male

DRUGS (2)
  1. CLONAZEPAM [Suspect]
     Dosage: PO
     Route: 048
  2. LITHIUM [Suspect]
     Dosage: PO
     Route: 048

REACTIONS (15)
  - ALANINE AMINOTRANSFERASE INCREASED [None]
  - ASPARTATE AMINOTRANSFERASE INCREASED [None]
  - ASPIRATION [None]
  - BLOOD PH DECREASED [None]
  - CARDIO-RESPIRATORY ARREST [None]
  - COMA [None]
  - COMPLETED SUICIDE [None]
  - HYPOXIA [None]
  - INTENTIONAL MISUSE [None]
  - LUNG INFILTRATION [None]
  - MYOCARDIAL INFARCTION [None]
  - PULMONARY EMBOLISM [None]
  - TACHYCARDIA [None]
  - THERAPY NON-RESPONDER [None]
  - WHEEZING [None]
